FAERS Safety Report 21448839 (Version 7)
Quarter: 2022Q4

REPORT INFORMATION
  Report Type: Report from Study
  Country: US (occurrence: US)
  Receive Date: 20221013
  Receipt Date: 20221220
  Transmission Date: 20230113
  Serious: Yes (Other)
  Sender: FDA-Public Use
  Company Number: US-NOVARTISTESTPH-NVSC2022US226125

PATIENT
  Sex: Male

DRUGS (1)
  1. ENTRESTO [Suspect]
     Active Substance: SACUBITRIL\VALSARTAN
     Indication: Product used for unknown indication
     Dosage: UNK UNK, BID
     Route: 048

REACTIONS (6)
  - Cardiac failure congestive [Unknown]
  - Cardiac failure [Unknown]
  - Fatigue [Unknown]
  - Hypoacusis [Unknown]
  - Blood pressure increased [Unknown]
  - Asthenia [Unknown]
